FAERS Safety Report 10045169 (Version 2)
Quarter: 2014Q1

REPORT INFORMATION
  Report Type: Spontaneous
  Country: GB (occurrence: GB)
  Receive Date: 20140328
  Receipt Date: 20140328
  Transmission Date: 20141002
  Serious: Yes (Life-Threatening, Hospitalization, Other)
  Sender: FDA-Public Use
  Company Number: PHFR2013GB007039

PATIENT
  Age: 47 Year
  Sex: Male
  Weight: 90 kg

DRUGS (10)
  1. CLOZARIL [Suspect]
     Indication: SCHIZOPHRENIA
     Dosage: UNK
     Route: 048
     Dates: start: 20010701
  2. CLOZARIL [Suspect]
     Dosage: 1200 MG
     Route: 048
     Dates: start: 20131208
  3. CLOZARIL [Suspect]
     Dosage: 1600 MG, (16 X100 MG)LAST NIGHT
     Dates: start: 20131209
  4. CLOZARIL [Suspect]
     Dosage: UNK
     Route: 048
  5. CLOZARIL [Suspect]
     Dosage: 1600 MG
     Dates: start: 20140212
  6. CLOZARIL [Suspect]
     Dosage: UNK
     Route: 048
  7. OMEPRAZOLE [Concomitant]
     Indication: GASTROOESOPHAGEAL REFLUX DISEASE
     Dosage: 40 MG, DAILY
     Route: 048
  8. AMISULPRIDE [Concomitant]
     Indication: SCHIZOPHRENIA
     Dosage: 250 MG, DAILY (100 MG MORNING, 150 MG NIGHT)
     Route: 048
  9. SODIUM VALPROATE [Concomitant]
     Indication: DEPRESSED MOOD
     Dosage: 1 G, UNK
     Route: 048
  10. SERTRALINE [Concomitant]
     Indication: DEPRESSED MOOD
     Dosage: 200 MG, UNK
     Route: 048

REACTIONS (2)
  - Intentional overdose [Recovered/Resolved]
  - Intentional self-injury [Unknown]
